FAERS Safety Report 11251351 (Version 2)
Quarter: 2015Q3

REPORT INFORMATION
  Report Type: Spontaneous
  Country: US (occurrence: US)
  Receive Date: 20150708
  Receipt Date: 20150708
  Transmission Date: 20151125
  Serious: No
  Sender: FDA-Public Use
  Company Number: US-ELI_LILLY_AND_COMPANY-US201111000220

PATIENT
  Age: 64 Year
  Sex: Female

DRUGS (5)
  1. SYMBYAX [Suspect]
     Active Substance: FLUOXETINE HYDROCHLORIDE\OLANZAPINE
     Dosage: UNK, QOD
     Dates: end: 20111015
  2. PROZAC [Suspect]
     Active Substance: FLUOXETINE HYDROCHLORIDE
     Dosage: 10 MG, UNK
     Dates: start: 2011
  3. PROZAC [Suspect]
     Active Substance: FLUOXETINE HYDROCHLORIDE
     Dosage: 20 MG, UNK
     Dates: start: 20111028
  4. SYMBYAX [Suspect]
     Active Substance: FLUOXETINE HYDROCHLORIDE\OLANZAPINE
     Dosage: UNK UNK, QD
     Dates: start: 20111111
  5. SYMBYAX [Suspect]
     Active Substance: FLUOXETINE HYDROCHLORIDE\OLANZAPINE
     Indication: DEPRESSION
     Dosage: UNK UNK, QD
     Dates: start: 201002, end: 20110826

REACTIONS (13)
  - Malaise [Recovering/Resolving]
  - Chest pain [Recovering/Resolving]
  - Emotional distress [Unknown]
  - Tearfulness [Unknown]
  - Dyspnoea [Recovering/Resolving]
  - Weight increased [Recovering/Resolving]
  - Fatigue [Unknown]
  - Depression [Unknown]
  - Muscular weakness [Unknown]
  - Tinnitus [Unknown]
  - Chest discomfort [Recovering/Resolving]
  - Toxicity to various agents [Unknown]
  - Drug ineffective [Unknown]

NARRATIVE: CASE EVENT DATE: 2010
